FAERS Safety Report 8205289-9 (Version None)
Quarter: 2012Q1

REPORT INFORMATION
  Report Type: 
  Country: None (occurrence: None)
  Receive Date: 20120313
  Receipt Date: 20120227
  Transmission Date: 20120608
  Serious: Yes (Life-Threatening, Hospitalization, Disabling)
  Sender: FDA-Public Use
  Company Number: CA-ROCHE-1046302

PATIENT
  Sex: Female
  Weight: 78.5 kg

DRUGS (5)
  1. PEGINTERFERON ALFA-2A [Suspect]
     Indication: HEPATITIS C
     Route: 058
     Dates: start: 20111121, end: 20120224
  2. BLINDED BI 201335 (HCV PROTEASE INHIBITOR) [Suspect]
     Indication: HEPATITIS C
     Route: 048
     Dates: start: 20111121, end: 20120213
  3. COPEGUS [Suspect]
     Indication: HEPATITIS C
     Route: 048
     Dates: start: 20111121, end: 20120224
  4. COPEGUS [Suspect]
     Dosage: DISCONTINUED
     Dates: end: 20120224
  5. BLINDED BI 201335 (HCV PROTEASE INHIBITOR) [Suspect]
     Dates: end: 20120224

REACTIONS (3)
  - RENAL FAILURE [None]
  - SEPSIS [None]
  - HEPATIC FAILURE [None]
